FAERS Safety Report 5022098-2 (Version None)
Quarter: 2006Q2

REPORT INFORMATION
  Report Type: 
  Country: None (occurrence: None)
  Receive Date: 20060605
  Receipt Date: 20060523
  Transmission Date: 20061013
  Serious: Yes (Hospitalization)
  Sender: FDA-Public Use
  Company Number: 2006-143098-NL

PATIENT
  Age: 80 Year
  Sex: Male

DRUGS (13)
  1. VECURONIUM BROMIDE [Suspect]
     Dosage: 50 MG
     Dates: start: 20060430, end: 20060430
  2. INSULIN HUMAN [Concomitant]
  3. SIVELESTAT [Concomitant]
  4. GLUCOSE INJECTION [Concomitant]
  5. HICALIQ [Concomitant]
  6. NEOAMIYU [Concomitant]
  7. VITAMEDIN INTRAVENOUS [Concomitant]
  8. MIDAZOLAM HCL [Concomitant]
  9. OMEPRAZOLE [Concomitant]
  10. BIAPENEM [Concomitant]
  11. MICAFUNGIN SODIUM [Concomitant]
  12. CIPROFLOXACIN HYDROCHLORIDE [Concomitant]
  13. NOREPINEPHRINE [Concomitant]

REACTIONS (3)
  - ANAPHYLACTIC SHOCK [None]
  - HAEMODIALYSIS [None]
  - OBSTRUCTIVE AIRWAYS DISORDER [None]
